FAERS Safety Report 21508250 (Version 1)
Quarter: 2022Q4

REPORT INFORMATION
  Report Type: Spontaneous
  Country: US (occurrence: US)
  Receive Date: 20221026
  Receipt Date: 20221026
  Transmission Date: 20230112
  Serious: Yes (Other)
  Sender: FDA-Public Use
  Company Number: US-drreddys-LIT/USA/22/0156184

PATIENT
  Age: 65 Year
  Sex: Male

DRUGS (6)
  1. SILVER SULFADIAZINE [Suspect]
     Active Substance: SILVER SULFADIAZINE
     Indication: Toxoplasmosis
  2. PYRIMETHAMINE [Suspect]
     Active Substance: PYRIMETHAMINE
     Indication: Toxoplasmosis
  3. LEUCOVORIN [Suspect]
     Active Substance: LEUCOVORIN
     Indication: Toxoplasmosis
  4. RITUXIMAB [Concomitant]
     Active Substance: RITUXIMAB
     Indication: Goodpasture^s syndrome
  5. CYCLOPHOSPHAMIDE [Concomitant]
     Active Substance: CYCLOPHOSPHAMIDE
     Indication: Goodpasture^s syndrome
  6. METHYLPREDNISOLONE [Concomitant]
     Active Substance: METHYLPREDNISOLONE
     Indication: Product used for unknown indication

REACTIONS (3)
  - Encephalitis [Unknown]
  - Vasculitis [Unknown]
  - Drug ineffective for unapproved indication [Unknown]
